FAERS Safety Report 4937011-3 (Version None)
Quarter: 2006Q1

REPORT INFORMATION
  Report Type: 
  Country: None (occurrence: None)
  Receive Date: 20060309
  Receipt Date: 20060223
  Transmission Date: 20060701
  Serious: Yes (Hospitalization)
  Sender: FDA-Public Use
  Company Number: FR-SANOFI-SYNTHELABO-A02200600510

PATIENT
  Age: 90 Year
  Sex: Female
  Weight: 64 kg

DRUGS (5)
  1. STILNOX [Suspect]
     Indication: DRUG USE FOR UNKNOWN INDICATION
     Dosage: UNK
     Route: 048
     Dates: start: 20060127, end: 20060204
  2. RIVOTRIL [Suspect]
     Indication: PAIN
     Dosage: UNK
     Route: 048
     Dates: start: 20060106, end: 20060101
  3. RIVOTRIL [Suspect]
     Dosage: 1 MG
     Route: 048
     Dates: start: 20060127, end: 20060204
  4. TEGRETOL [Concomitant]
     Indication: PAIN
     Route: 048
     Dates: start: 20060101, end: 20060113
  5. TEGRETOL [Concomitant]
     Route: 048
     Dates: start: 20060114, end: 20060127

REACTIONS (3)
  - ENCEPHALOPATHY [None]
  - RESPIRATORY DISTRESS [None]
  - SOMNOLENCE [None]
